FAERS Safety Report 12975607 (Version 1)
Quarter: 2016Q4

REPORT INFORMATION
  Report Type: Report from Study
  Country: FR (occurrence: FR)
  Receive Date: 20161125
  Receipt Date: 20161125
  Transmission Date: 20170207
  Serious: Yes (Hospitalization)
  Sender: FDA-Public Use
  Company Number: FR-ROCHE-1854458

PATIENT
  Age: 44 Year
  Sex: Female

DRUGS (12)
  1. OXYCONTIN [Concomitant]
     Active Substance: OXYCODONE HYDROCHLORIDE
     Indication: FLANK PAIN
     Route: 065
     Dates: start: 20161102, end: 20161111
  2. GEMCITABINE [Suspect]
     Active Substance: GEMCITABINE\GEMCITABINE HYDROCHLORIDE
     Indication: OVARIAN CANCER
     Dosage: DATE OF LAST ADMINISTRATION PRIOR TO AE:02/NOV/2016 (1640 MG/M2)
     Route: 042
     Dates: start: 20161026, end: 20161110
  3. PRIMPERAN [Concomitant]
     Active Substance: METOCLOPRAMIDE HYDROCHLORIDE
     Indication: PROPHYLAXIS
     Route: 065
     Dates: start: 201610, end: 20161109
  4. ATEZOLIZUMAB [Suspect]
     Active Substance: ATEZOLIZUMAB
     Indication: OVARIAN CANCER
     Dosage: DATE OF LAST ADMINISTRATION PRIOR TO AE: 26/OCT/2016
     Route: 042
     Dates: start: 20161026, end: 20161110
  5. PARACETAMOL [Concomitant]
     Active Substance: ACETAMINOPHEN
  6. HYDROCORTISONE. [Concomitant]
     Active Substance: HYDROCORTISONE
     Indication: ADRENAL INSUFFICIENCY
     Route: 065
     Dates: start: 20160923, end: 20161110
  7. NIVESTIM [Concomitant]
     Active Substance: FILGRASTIM
     Indication: PROPHYLAXIS
     Route: 065
     Dates: start: 20161103, end: 20161105
  8. OXYNORM [Concomitant]
     Active Substance: OXYCODONE HYDROCHLORIDE
     Indication: FLANK PAIN
     Route: 065
     Dates: start: 20161014, end: 20161108
  9. CARBOPLATIN. [Suspect]
     Active Substance: CARBOPLATIN
     Indication: OVARIAN CANCER
     Dosage: DATE OF LAST ADMINISTRATION PRIOR TO AE: 26/OCT/2016 AT 550 MG
     Route: 042
     Dates: start: 20161026, end: 20161114
  10. LOVENOX [Concomitant]
     Active Substance: ENOXAPARIN SODIUM
     Indication: THROMBOSIS PROPHYLAXIS
  11. BEVACIZUMAB [Suspect]
     Active Substance: BEVACIZUMAB
     Indication: OVARIAN CANCER
     Dosage: DATE OF LAST ADMINISTRATION PRIOR TO AE:26/OCT/2016 AT 975 MG/KG
     Route: 042
     Dates: start: 20161026, end: 20161114
  12. ALPRAZOLAM. [Concomitant]
     Active Substance: ALPRAZOLAM
     Indication: SUICIDAL IDEATION

REACTIONS (1)
  - Immune thrombocytopenic purpura [Recovered/Resolved]

NARRATIVE: CASE EVENT DATE: 20161108
